FAERS Safety Report 16145684 (Version 5)
Quarter: 2019Q3

REPORT INFORMATION
  Report Type: Report from Study
  Country: JP (occurrence: JP)
  Receive Date: 20190402
  Receipt Date: 20190917
  Transmission Date: 20191004
  Serious: Yes (Hospitalization, Other)
  Sender: FDA-Public Use
  Company Number: JP-ROCHE-2291310

PATIENT
  Age: 48 Year
  Sex: Male
  Weight: 65 kg

DRUGS (45)
  1. MEDROL [Suspect]
     Active Substance: METHYLPREDNISOLONE
     Route: 048
     Dates: start: 20180821, end: 20180920
  2. GRACEPTOR [Suspect]
     Active Substance: TACROLIMUS
     Indication: ABO INCOMPATIBILITY
     Dosage: DOSAGE IS UNCERTAIN
     Route: 048
     Dates: start: 20180717, end: 20180719
  3. GRACEPTOR [Suspect]
     Active Substance: TACROLIMUS
     Route: 048
     Dates: start: 20180817, end: 20180912
  4. SOLU-MEDROL [Concomitant]
     Active Substance: METHYLPREDNISOLONE SODIUM SUCCINATE
     Route: 042
     Dates: start: 20180724, end: 20180724
  5. MEDROL [Suspect]
     Active Substance: METHYLPREDNISOLONE
     Route: 048
     Dates: start: 20180921, end: 20181008
  6. MEDROL [Suspect]
     Active Substance: METHYLPREDNISOLONE
     Route: 048
     Dates: start: 20181009, end: 20181015
  7. GRACEPTOR [Suspect]
     Active Substance: TACROLIMUS
     Route: 048
     Dates: start: 20180913, end: 20180924
  8. SOLU-MEDROL [Concomitant]
     Active Substance: METHYLPREDNISOLONE SODIUM SUCCINATE
     Route: 042
     Dates: start: 20180731, end: 20180801
  9. CERTICAN [Concomitant]
     Active Substance: EVEROLIMUS
     Indication: PROPHYLAXIS AGAINST TRANSPLANT REJECTION
     Route: 048
     Dates: start: 20180914, end: 20180922
  10. FUNGUARD [Concomitant]
     Active Substance: MICAFUNGIN SODIUM
     Indication: INFECTION PROPHYLAXIS
     Dosage: DOSE INTERVAL UNCERTAINTY
     Route: 042
     Dates: start: 20180724, end: 20180806
  11. VENOGLOBULIN [Concomitant]
     Active Substance: HUMAN IMMUNOGLOBULIN G
     Indication: INFECTION PROPHYLAXIS
     Dosage: DOSE INTERVAL UNCERTAINTY
     Route: 042
     Dates: start: 20180724, end: 20180727
  12. MEDROL [Suspect]
     Active Substance: METHYLPREDNISOLONE
     Indication: ABO INCOMPATIBILITY
     Route: 048
     Dates: start: 20180804, end: 20180806
  13. GRACEPTOR [Suspect]
     Active Substance: TACROLIMUS
     Indication: PROPHYLAXIS AGAINST TRANSPLANT REJECTION
     Route: 048
     Dates: start: 20180720, end: 20180727
  14. GRACEPTOR [Suspect]
     Active Substance: TACROLIMUS
     Route: 048
     Dates: start: 20180811, end: 20180816
  15. CERTICAN [Suspect]
     Active Substance: EVEROLIMUS
     Indication: PROPHYLAXIS AGAINST TRANSPLANT REJECTION
     Route: 048
     Dates: start: 20180922, end: 20190118
  16. SOLU-MEDROL [Concomitant]
     Active Substance: METHYLPREDNISOLONE SODIUM SUCCINATE
     Route: 042
     Dates: start: 20180730, end: 20180730
  17. SOLU-MEDROL [Concomitant]
     Active Substance: METHYLPREDNISOLONE SODIUM SUCCINATE
     Route: 042
     Dates: start: 20180802, end: 20180803
  18. CELLCEPT [Suspect]
     Active Substance: MYCOPHENOLATE MOFETIL\MYCOPHENOLATE MOFETIL HYDROCHLORIDE
     Indication: PROPHYLAXIS AGAINST TRANSPLANT REJECTION
     Dosage: DOSE INTERVAL UNCERTAINTY
     Route: 048
     Dates: start: 20180723, end: 20180905
  19. CELLCEPT [Suspect]
     Active Substance: MYCOPHENOLATE MOFETIL\MYCOPHENOLATE MOFETIL HYDROCHLORIDE
     Dosage: DOSE INTERVAL UNCERTAINTY
     Route: 048
     Dates: start: 20180906, end: 20180913
  20. MEDROL [Suspect]
     Active Substance: METHYLPREDNISOLONE
     Dosage: DOSE INTERVAL UNCERTAINTY
     Route: 048
     Dates: start: 20190101
  21. GRACEPTOR [Suspect]
     Active Substance: TACROLIMUS
     Route: 048
     Dates: start: 20180807, end: 20180810
  22. GRACEPTOR [Suspect]
     Active Substance: TACROLIMUS
     Route: 048
     Dates: start: 20180925, end: 20181008
  23. GRACEPTOR [Suspect]
     Active Substance: TACROLIMUS
     Route: 048
     Dates: start: 20181019
  24. CERTICAN [Suspect]
     Active Substance: EVEROLIMUS
     Indication: ABO INCOMPATIBILITY
     Route: 048
     Dates: start: 20180914, end: 20180922
  25. CERTICAN [Suspect]
     Active Substance: EVEROLIMUS
     Route: 048
     Dates: start: 20190119
  26. CERTICAN [Concomitant]
     Active Substance: EVEROLIMUS
     Route: 048
     Dates: start: 20180922
  27. ACELIO [Concomitant]
     Active Substance: ACETAMINOPHEN
     Route: 042
     Dates: start: 20180704, end: 20180704
  28. RITUXIMAB. [Suspect]
     Active Substance: RITUXIMAB
     Indication: PROPHYLAXIS AGAINST TRANSPLANT REJECTION
  29. MEDROL [Suspect]
     Active Substance: METHYLPREDNISOLONE
     Dosage: DOSE INTERVAL UNCERTAINTY
     Route: 048
     Dates: start: 20181023, end: 20181231
  30. SOLU-MEDROL [Concomitant]
     Active Substance: METHYLPREDNISOLONE SODIUM SUCCINATE
     Indication: ABO INCOMPATIBILITY
     Route: 042
     Dates: start: 20180723, end: 20180723
  31. MEDROL [Suspect]
     Active Substance: METHYLPREDNISOLONE
     Dosage: DOSE INTERVAL UNCERTAINTY
     Route: 048
     Dates: start: 20181016, end: 20181022
  32. GRACEPTOR [Suspect]
     Active Substance: TACROLIMUS
     Route: 048
     Dates: start: 20181009, end: 20181018
  33. SOLU-MEDROL [Concomitant]
     Active Substance: METHYLPREDNISOLONE SODIUM SUCCINATE
     Route: 042
     Dates: start: 20180727, end: 20180728
  34. VENOGLOBULIN [Concomitant]
     Active Substance: HUMAN IMMUNOGLOBULIN G
     Route: 042
     Dates: start: 20180730, end: 20180730
  35. POLARAMINE [Concomitant]
     Active Substance: DEXCHLORPHENIRAMINE MALEATE
     Route: 042
     Dates: start: 20180704, end: 20180704
  36. RITUXIMAB. [Suspect]
     Active Substance: RITUXIMAB
     Indication: ABO INCOMPATIBILITY
     Route: 041
     Dates: start: 20180704, end: 20180704
  37. MEDROL [Suspect]
     Active Substance: METHYLPREDNISOLONE
     Indication: PROPHYLAXIS AGAINST TRANSPLANT REJECTION
     Route: 048
     Dates: start: 20180807, end: 20180820
  38. SOLU-MEDROL [Concomitant]
     Active Substance: METHYLPREDNISOLONE SODIUM SUCCINATE
     Route: 042
     Dates: start: 20180726, end: 20180726
  39. CLAFORAN [Concomitant]
     Active Substance: CEFOTAXIME SODIUM
     Indication: INFECTION PROPHYLAXIS
     Dosage: DOSE INTERVAL UNCERTAINTY
     Route: 042
     Dates: start: 2018, end: 20180728
  40. SOLU-CORTEF [Concomitant]
     Active Substance: HYDROCORTISONE SODIUM SUCCINATE
     Route: 042
     Dates: start: 20180704, end: 20180704
  41. CELLCEPT [Suspect]
     Active Substance: MYCOPHENOLATE MOFETIL\MYCOPHENOLATE MOFETIL HYDROCHLORIDE
     Indication: ABO INCOMPATIBILITY
     Dosage: DOSE INTERVAL UNCERTAINTY
     Route: 048
     Dates: start: 20180716, end: 20180723
  42. GRACEPTOR [Suspect]
     Active Substance: TACROLIMUS
     Route: 048
     Dates: start: 20180727, end: 20180806
  43. SOLU-MEDROL [Concomitant]
     Active Substance: METHYLPREDNISOLONE SODIUM SUCCINATE
     Route: 042
     Dates: start: 20180725, end: 20180725
  44. SOLU-MEDROL [Concomitant]
     Active Substance: METHYLPREDNISOLONE SODIUM SUCCINATE
     Route: 042
     Dates: start: 20180729, end: 20180729
  45. UNASYN [SULTAMICILLIN TOSILATE] [Concomitant]
     Active Substance: SULTAMICILLIN TOSYLATE
     Indication: INFECTION PROPHYLAXIS
     Dosage: DOSE INTERVAL UNCERTAINTY
     Route: 042
     Dates: start: 20180723, end: 20180728

REACTIONS (6)
  - Klebsiella infection [Recovering/Resolving]
  - Staphylococcal infection [Unknown]
  - Pyrexia [Recovering/Resolving]
  - Inflammation [Recovering/Resolving]
  - Pancytopenia [Recovering/Resolving]
  - Cytomegalovirus infection [Recovering/Resolving]

NARRATIVE: CASE EVENT DATE: 20180724
